FAERS Safety Report 14851937 (Version 1)
Quarter: 2018Q2

REPORT INFORMATION
  Report Type: Spontaneous
  Country: CH (occurrence: CH)
  Receive Date: 20180507
  Receipt Date: 20180507
  Transmission Date: 20180711
  Serious: Yes (Hospitalization)
  Sender: FDA-Public Use
  Company Number: CH-TEVA-2018-CH-890163

PATIENT
  Age: 84 Year
  Sex: Male

DRUGS (9)
  1. CONCOR 5 (MITE) LACKTABLETTEN [Suspect]
     Active Substance: BISOPROLOL FUMARATE
     Dosage: 10 MILLIGRAM DAILY;
     Route: 048
     Dates: end: 20180306
  2. CONCOR 2,5 MG LACKTABLETTEN [Suspect]
     Active Substance: BISOPROLOL FUMARATE
     Dosage: 7.5 MILLIGRAM DAILY;
     Route: 048
     Dates: end: 20180306
  3. METOLAZON [Concomitant]
     Active Substance: METOLAZONE
     Dosage: 5 MILLIGRAM DAILY;
     Route: 048
     Dates: end: 20180306
  4. ENALAPRIL MEPHA [Suspect]
     Active Substance: ENALAPRIL
     Dosage: 5 MILLIGRAM DAILY;
     Route: 048
     Dates: end: 20180306
  5. ALDACTONE [Suspect]
     Active Substance: SPIRONOLACTONE
     Dosage: 25 MILLIGRAM DAILY;
     Route: 048
     Dates: end: 20180306
  6. DIGOXINE [Suspect]
     Active Substance: DIGOXIN
     Dosage: .125 MILLIGRAM DAILY;
     Route: 048
  7. XARELTO [Concomitant]
     Active Substance: RIVAROXABAN
     Dosage: 20 MILLIGRAM DAILY;
     Route: 048
  8. TIROSINT [Concomitant]
     Active Substance: LEVOTHYROXINE SODIUM
     Dosage: 50 MICROGRAM DAILY;
     Route: 048
  9. TORASEMID SANDOZ ECO [Concomitant]
     Active Substance: TORSEMIDE
     Dosage: 10 MILLIGRAM DAILY;
     Route: 048
     Dates: end: 20180306

REACTIONS (5)
  - Bradycardia [Recovered/Resolved]
  - Asthenia [Recovered/Resolved]
  - Cardiogenic shock [Recovered/Resolved]
  - Hyperkalaemia [Recovered/Resolved]
  - Malaise [Recovered/Resolved]

NARRATIVE: CASE EVENT DATE: 20180306
